FAERS Safety Report 25426040 (Version 1)
Quarter: 2025Q2

REPORT INFORMATION
  Report Type: Spontaneous
  Country: US (occurrence: US)
  Receive Date: 20250612
  Receipt Date: 20250612
  Transmission Date: 20250716
  Serious: Yes (Hospitalization, Other)
  Sender: ABBVIE
  Company Number: US-ABBVIE-6314778

PATIENT
  Age: 62 Year
  Sex: Female

DRUGS (1)
  1. SKYRIZI [Suspect]
     Active Substance: RISANKIZUMAB-RZAA
     Indication: Crohn^s disease
     Dosage: FORM STRENGTH: 360 MILLIGRAM
     Route: 058
     Dates: start: 202406

REACTIONS (12)
  - Infection [Recovering/Resolving]
  - Bacterial test positive [Not Recovered/Not Resolved]
  - Gram stain positive [Not Recovered/Not Resolved]
  - Culture wound positive [Not Recovered/Not Resolved]
  - White blood cell count increased [Recovering/Resolving]
  - C-reactive protein increased [Recovering/Resolving]
  - Device kink [Recovered/Resolved]
  - Incision site discharge [Not Recovered/Not Resolved]
  - Pyrexia [Recovering/Resolving]
  - Contusion [Not Recovered/Not Resolved]
  - Ileostomy [Unknown]
  - Device issue [Not Recovered/Not Resolved]

NARRATIVE: CASE EVENT DATE: 20241114
